FAERS Safety Report 9746256 (Version 1)
Quarter: 2013Q4

REPORT INFORMATION
  Report Type: Spontaneous
  Country: US (occurrence: US)
  Receive Date: 20131211
  Receipt Date: 20131211
  Transmission Date: 20140711
  Serious: Yes (Death, Other)
  Sender: FDA-Public Use
  Company Number: US-B.I. PHARMACEUTICALS,INC./RIDGEFIELD-2013-BI-41416BP

PATIENT
  Age: 82 Year
  Sex: Female

DRUGS (12)
  1. SPIRIVA [Suspect]
     Indication: CHRONIC OBSTRUCTIVE PULMONARY DISEASE
     Dosage: 18 MCG
     Route: 055
     Dates: start: 201005
  2. ADVAIR DISKUS [Concomitant]
  3. DICLOFENAC POTASSIUM [Concomitant]
  4. DOXYCYCLINE [Concomitant]
  5. FUROSIMIDE [Concomitant]
  6. GABIPENTIN [Concomitant]
  7. HYDROCODON/TYLENOL [Concomitant]
  8. ISOSORBIDE MONO ER [Concomitant]
  9. METOPROLOL TITRATE [Concomitant]
  10. NITRO STAT [Concomitant]
  11. PROAIR [Concomitant]
  12. THYROXINE [Concomitant]

REACTIONS (4)
  - Death [Fatal]
  - Muscle strain [Unknown]
  - Cystitis [Unknown]
  - Fall [Recovered/Resolved]
